FAERS Safety Report 25936935 (Version 1)
Quarter: 2025Q4

REPORT INFORMATION
  Report Type: Spontaneous
  Country: EU (occurrence: None)
  Receive Date: 20251017
  Receipt Date: 20251017
  Transmission Date: 20260117
  Serious: Yes (Other)
  Sender: UCB
  Company Number: EU-UCBSA-2025064804

PATIENT
  Age: 30 Year

DRUGS (2)
  1. FINTEPLA [Suspect]
     Active Substance: FENFLURAMINE
     Indication: Lennox-Gastaut syndrome
     Dosage: 6.5 MILLILITER, 2X/DAY (BID)
  2. FINTEPLA [Suspect]
     Active Substance: FENFLURAMINE
     Dosage: 4 MILLILITER, 2X/DAY (BID)

REACTIONS (5)
  - Depressed level of consciousness [Unknown]
  - Incontinence [Unknown]
  - Weight decreased [Unknown]
  - Off label use [Unknown]
  - Overdose [Unknown]
